FAERS Safety Report 21803583 (Version 1)
Quarter: 2023Q1

REPORT INFORMATION
  Report Type: Spontaneous
  Country: US (occurrence: US)
  Receive Date: 20230101
  Receipt Date: 20230101
  Transmission Date: 20230418
  Serious: No
  Sender: FDA-Public Use
  Company Number: US-SANOFI-01423511

PATIENT
  Age: 26 Year
  Sex: Female

DRUGS (7)
  1. DUPIXENT [Suspect]
     Active Substance: DUPILUMAB
     Indication: Asthma
     Dosage: 300 MG, QOW
     Dates: start: 20221031
  2. FLOVENT [Concomitant]
     Active Substance: FLUTICASONE PROPIONATE
  3. PREDNISONE [Concomitant]
     Active Substance: PREDNISONE
  4. XULANE [Concomitant]
     Active Substance: ETHINYL ESTRADIOL\NORELGESTROMIN
  5. NADOLOL [Concomitant]
     Active Substance: NADOLOL
  6. SINGULAIR [Concomitant]
     Active Substance: MONTELUKAST SODIUM
  7. STIOLTO RESPIMAT [Concomitant]
     Active Substance: OLODATEROL HYDROCHLORIDE\TIOTROPIUM BROMIDE MONOHYDRATE

REACTIONS (1)
  - Injection site haemorrhage [Unknown]

NARRATIVE: CASE EVENT DATE: 20221213
